FAERS Safety Report 5240021-2 (Version None)
Quarter: 2007Q1

REPORT INFORMATION
  Report Type: 
  Country: None (occurrence: None)
  Receive Date: 20070216
  Receipt Date: 20070206
  Transmission Date: 20070707
  Serious: Yes (Other)
  Sender: FDA-Public Use
  Company Number: RO-PFIZER INC-2007007989

PATIENT
  Age: 42 Year
  Sex: Male

DRUGS (5)
  1. ATORVASTATIN [Suspect]
     Indication: DYSLIPIDAEMIA
     Route: 048
     Dates: start: 20061101, end: 20061201
  2. EZETIMIBE [Concomitant]
     Route: 048
  3. COAPROVEL [Concomitant]
  4. IRBESARTAN [Concomitant]
     Route: 048
  5. ZOCOR [Concomitant]
     Route: 048
     Dates: start: 20051101, end: 20061101

REACTIONS (1)
  - APLASIA [None]
